FAERS Safety Report 4492523-4 (Version None)
Quarter: 2004Q4

REPORT INFORMATION
  Report Type: 
  Country: None (occurrence: None)
  Receive Date: 20041102
  Receipt Date: 20041102
  Transmission Date: 20050328
  Serious: No
  Sender: FDA-Public Use
  Company Number: None

PATIENT
  Age: 51 Year
  Sex: Male

DRUGS (10)
  1. LIDOCAINE 1% [Suspect]
     Indication: SPINAL ANAESTHESIA
     Dosage: APPROX 25 ML ONCE INTRACERVI
     Route: 017
     Dates: start: 20040726, end: 20040726
  2. BUPIVACAINE [Suspect]
     Indication: SPINAL ANAESTHESIA
     Dosage: APPROX 25 ML ONCE INTRACERVI
     Route: 019
     Dates: start: 20040726, end: 20040726
  3. MIDAZOLAM [Concomitant]
  4. FENTANYL [Concomitant]
  5. PREDNISONE [Concomitant]
  6. METHOTREXATE [Concomitant]
  7. LEUCOVORIN [Concomitant]
  8. VITAMIN CAP [Concomitant]
  9. PANTOPRAZOLE [Concomitant]
  10. CALCIUM [Concomitant]

REACTIONS (6)
  - ANAESTHETIC COMPLICATION [None]
  - COMA [None]
  - CONVULSION [None]
  - DRUG TOXICITY [None]
  - LIVER FUNCTION TEST ABNORMAL [None]
  - SOMNOLENCE [None]
